FAERS Safety Report 9575070 (Version 1)
Quarter: 2013Q4

REPORT INFORMATION
  Report Type: Spontaneous
  Country: US (occurrence: US)
  Receive Date: 20131001
  Receipt Date: 20131001
  Transmission Date: 20140711
  Serious: No
  Sender: FDA-Public Use
  Company Number: US-PURDUE-USA-2012-0081153

PATIENT
  Age: 35 Year
  Sex: Female

DRUGS (1)
  1. BUTRANS [Suspect]
     Indication: IMPAIRED GASTRIC EMPTYING
     Dosage: 5 MCG, Q1H
     Route: 062

REACTIONS (7)
  - Drug withdrawal syndrome [Unknown]
  - Application site burn [Unknown]
  - Application site erosion [Unknown]
  - Pain [Unknown]
  - Exposure during pregnancy [Unknown]
  - Product adhesion issue [Unknown]
  - Diarrhoea [Unknown]
